FAERS Safety Report 7398978-X (Version None)
Quarter: 2011Q1

REPORT INFORMATION
  Report Type: 
  Country: None (occurrence: None)
  Receive Date: 20110301
  Receipt Date: 20100723
  Transmission Date: 20110831
  Serious: Yes (Other)
  Sender: FDA-Public Use
  Company Number: US-JNJFOC-20100607951

PATIENT
  Sex: Male

DRUGS (1)
  1. CHILDREN'S MOTRIN [Suspect]
     Indication: UPPER LIMB FRACTURE
     Dosage: 1 IN 1 TOTAL, ORAL
     Route: 048
     Dates: start: 20100325, end: 20100325

REACTIONS (3)
  - PRODUCT QUALITY ISSUE [None]
  - PAIN [None]
  - HYPERSENSITIVITY [None]
